FAERS Safety Report 6414300-7 (Version None)
Quarter: 2009Q4

REPORT INFORMATION
  Report Type: 
  Country: None (occurrence: None)
  Receive Date: 20091026
  Receipt Date: 20091014
  Transmission Date: 20100525
  Serious: Yes (Other)
  Sender: FDA-Public Use
  Company Number: US-PFIZER INC-2009219623

PATIENT
  Sex: Female
  Weight: 76.6 kg

DRUGS (5)
  1. DILANTIN [Suspect]
     Indication: EPILEPSY
     Dosage: 260MG SIX DAYS A WEEK AND 290MG ONCE A WEEK
     Route: 050
     Dates: start: 19910101
  2. LEVAQUIN [Interacting]
     Dosage: UNK
  3. ALTACE [Concomitant]
     Dosage: 5 MG, UNK
  4. PROVIGIL [Concomitant]
     Dosage: 200 MG, UNK
  5. NAMENDA [Concomitant]
     Dosage: 10 MG, UNK

REACTIONS (5)
  - ANTICONVULSANT DRUG LEVEL INCREASED [None]
  - BRAIN NEOPLASM [None]
  - CEREBROVASCULAR ACCIDENT [None]
  - DRUG INTERACTION [None]
  - NEOPLASM MALIGNANT [None]
